FAERS Safety Report 7421319-6 (Version None)
Quarter: 2011Q2

REPORT INFORMATION
  Report Type: 
  Country: None (occurrence: None)
  Receive Date: 20110418
  Receipt Date: 20110404
  Transmission Date: 20111010
  Serious: Yes (Hospitalization, Other)
  Sender: FDA-Public Use
  Company Number: US-JNJFOC-20110206637

PATIENT
  Sex: Female
  Weight: 63.5 kg

DRUGS (4)
  1. REMICADE [Suspect]
     Indication: PSORIASIS
     Route: 042
  2. REMICADE [Suspect]
     Route: 042
  3. LISINOPRIL [Concomitant]
     Indication: BLOOD PRESSURE
     Route: 048
  4. REMICADE [Suspect]
     Route: 042

REACTIONS (8)
  - SKIN DISCOLOURATION [None]
  - HYPERTENSION [None]
  - RESPIRATORY RATE INCREASED [None]
  - TACHYCARDIA [None]
  - MUSCLE SPASMS [None]
  - INFUSION RELATED REACTION [None]
  - PAIN [None]
  - TREMOR [None]
